FAERS Safety Report 8517172-X (Version None)
Quarter: 2012Q3

REPORT INFORMATION
  Report Type: 
  Country: None (occurrence: None)
  Receive Date: 20120718
  Receipt Date: 20120706
  Transmission Date: 20120928
  Serious: Yes (Hospitalization, Other)
  Sender: FDA-Public Use
  Company Number: US-BAYER-2012-068107

PATIENT
  Age: 38 Year
  Sex: Female
  Weight: 108.39 kg

DRUGS (3)
  1. MOBIC [Concomitant]
     Dosage: 15 MG, UNK
  2. YAZ [Suspect]
     Indication: DYSMENORRHOEA
  3. NAPROSYN [Concomitant]
     Dosage: 500 MG, BID
     Route: 048

REACTIONS (2)
  - PHLEBITIS SUPERFICIAL [None]
  - DEEP VEIN THROMBOSIS [None]
